FAERS Safety Report 8202960-X (Version None)
Quarter: 2012Q1

REPORT INFORMATION
  Report Type: 
  Country: None (occurrence: None)
  Receive Date: 20120312
  Receipt Date: 20120307
  Transmission Date: 20120608
  Serious: Yes (Disabling, Other)
  Sender: FDA-Public Use
  Company Number: US-PFIZER INC-2012061899

PATIENT
  Sex: Male

DRUGS (6)
  1. EFFEXOR XR [Suspect]
     Dosage: 225 MG, DAILY (150M AND 75MG)
  2. BUSPAR [Concomitant]
     Dosage: 10 MG, 3X/DAY
  3. LAMICTAL [Concomitant]
     Dosage: 100 MG, (AT BEDTIME)
  4. ABILIFY [Concomitant]
     Dosage: 10 MG, 1X/DAY
  5. PRAVASTATIN [Concomitant]
     Dosage: UNK
  6. HYDROCODONE [Concomitant]
     Dosage: UNK

REACTIONS (2)
  - JOINT INJURY [None]
  - DYSLEXIA [None]
